FAERS Safety Report 8851122 (Version 1)
Quarter: 2012Q4

REPORT INFORMATION
  Report Type: Report from Study
  Country: JP (occurrence: JP)
  Receive Date: 20121020
  Receipt Date: 20121020
  Transmission Date: 20130627
  Serious: Yes (Hospitalization)
  Sender: FDA-Public Use
  Company Number: JP-009507513-2012SP035008

PATIENT
  Age: 62 Year
  Sex: Female
  Weight: 59 kg

DRUGS (11)
  1. PEGINTRON [Suspect]
     Indication: HEPATITIS C
     Dosage: 1.35 Microgram per kilogram, QW
     Route: 058
     Dates: start: 20120418, end: 20120515
  2. PEGINTRON [Suspect]
     Dosage: 1.35 Microgram per kilogram, QW
     Route: 058
     Dates: start: 20120530
  3. REBETOL [Suspect]
     Indication: HEPATITIS C
     Dosage: 200 mg, QD
     Route: 048
     Dates: start: 20120502, end: 20120515
  4. REBETOL [Suspect]
     Dosage: 600 mg, QD
     Route: 048
     Dates: start: 20120418, end: 20120424
  5. REBETOL [Suspect]
     Dosage: 400 mg, QD
     Route: 048
     Dates: start: 20120425, end: 20120501
  6. REBETOL [Suspect]
     Dosage: 200 mg, QD
     Route: 048
     Dates: start: 20120530
  7. TELAPREVIR [Suspect]
     Indication: HEPATITIS C
     Dosage: 1500 mg, QD
     Route: 048
     Dates: start: 20120425, end: 20120515
  8. TELAPREVIR [Suspect]
     Dosage: 2250 mg, QD
     Route: 048
     Dates: start: 20120418, end: 20120424
  9. ALLELOCK [Concomitant]
     Indication: PRODUCT USED FOR UNKNOWN INDICATION
     Dosage: UNK
     Route: 048
  10. CELESTAMINE [Concomitant]
     Indication: PRODUCT USED FOR UNKNOWN INDICATION
     Dosage: UNK
     Route: 048
  11. MYSER (DIFLUPREDNATE) [Concomitant]
     Indication: PRODUCT USED FOR UNKNOWN INDICATION
     Dosage: UNK
     Route: 061

REACTIONS (1)
  - Renal impairment [Recovered/Resolved]
